FAERS Safety Report 6166904-7 (Version None)
Quarter: 2009Q2

REPORT INFORMATION
  Report Type: 
  Country: None (occurrence: None)
  Receive Date: 20090424
  Receipt Date: 20090420
  Transmission Date: 20091009
  Serious: Yes (Other)
  Sender: FDA-Public Use
  Company Number: B0571418A

PATIENT
  Age: 80 Year
  Sex: Male

DRUGS (8)
  1. RANITIDINE [Suspect]
  2. MORPHINE SULFATE [Suspect]
     Route: 048
  3. MORPHINE SULFATE [Suspect]
  4. AMITRIPTLINE HYDROCHLORIDE TAB [Suspect]
  5. TRAMADOL HCL [Concomitant]
  6. PARACETAMOL [Concomitant]
  7. BISACODYL [Concomitant]
  8. IBUPROFEN [Concomitant]

REACTIONS (12)
  - BLOOD ALBUMIN DECREASED [None]
  - BREAKTHROUGH PAIN [None]
  - CONSCIOUSNESS FLUCTUATING [None]
  - DRUG INTERACTION [None]
  - MIOSIS [None]
  - OVERDOSE [None]
  - RESPIRATORY DEPRESSION [None]
  - SEDATION [None]
  - SLEEP DISORDER [None]
  - SOMNOLENCE [None]
  - THERAPEUTIC RESPONSE DECREASED [None]
  - UNRESPONSIVE TO STIMULI [None]
